FAERS Safety Report 23002585 (Version 2)
Quarter: 2023Q4

REPORT INFORMATION
  Report Type: Spontaneous
  Country: US (occurrence: US)
  Receive Date: 20230928
  Receipt Date: 20231115
  Transmission Date: 20240109
  Serious: No
  Sender: FDA-Public Use
  Company Number: US-PFIZER INC-PV202300161102

PATIENT
  Age: 43 Year
  Sex: Female
  Weight: 120.18 kg

DRUGS (1)
  1. XELJANZ XR [Suspect]
     Active Substance: TOFACITINIB CITRATE
     Indication: Psoriatic arthropathy
     Dosage: 11 MG 1 TABLET ONCE A DAY
     Route: 048
     Dates: start: 2022

REACTIONS (1)
  - General physical health deterioration [Recovered/Resolved]
